FAERS Safety Report 10029558 (Version 1)
Quarter: 2014Q1

REPORT INFORMATION
  Report Type: Spontaneous
  Country: US (occurrence: None)
  Receive Date: 20140320
  Receipt Date: 20140320
  Transmission Date: 20141002
  Serious: Yes (Life-Threatening, Hospitalization)
  Sender: FDA-Public Use
  Company Number: None

PATIENT
  Age: 55 Year
  Sex: Female
  Weight: 74.84 kg

DRUGS (1)
  1. SYNTHROID [Suspect]
     Dosage: 1DOSE ONCE DAILY TAKEN BY MOUTH
     Route: 048

REACTIONS (5)
  - Dyspnoea [None]
  - Dizziness [None]
  - Cardiac disorder [None]
  - Weight normal [None]
  - Functional gastrointestinal disorder [None]
